FAERS Safety Report 5830017-1 (Version None)
Quarter: 2008Q3

REPORT INFORMATION
  Report Type: 
  Country: None (occurrence: None)
  Receive Date: 20080731
  Receipt Date: 20080731
  Transmission Date: 20090109
  Serious: Yes (Hospitalization)
  Sender: FDA-Public Use
  Company Number: None

PATIENT
  Age: 18 Year
  Sex: Male
  Weight: 72 kg

DRUGS (1)
  1. ACCUTANE [Suspect]
     Indication: ACNE CYSTIC
     Dosage: 80MG DAILY PO
     Route: 048
     Dates: start: 20080602, end: 20080704

REACTIONS (2)
  - COORDINATION ABNORMAL [None]
  - MUSCULAR WEAKNESS [None]
